FAERS Safety Report 9494892 (Version 2)
Quarter: 2013Q4

REPORT INFORMATION
  Report Type: Spontaneous
  Country: US (occurrence: US)
  Receive Date: 20130903
  Receipt Date: 20131023
  Transmission Date: 20140711
  Serious: Yes (Congenital Anomaly, Other)
  Sender: FDA-Public Use
  Company Number: US-PFIZER INC-2013251980

PATIENT
  Sex: Male

DRUGS (9)
  1. ZOLOFT [Suspect]
     Indication: DEPRESSION
     Dosage: UNK
     Route: 064
     Dates: start: 200509, end: 200604
  2. EFEXOR XR [Concomitant]
     Dosage: 150 MG, UNK
     Route: 064
  3. FLONASE [Concomitant]
     Dosage: UNK
     Route: 064
  4. SODIUM SULFATE [Concomitant]
     Dosage: UNK
     Route: 064
  5. CLINDAMYCIN [Concomitant]
     Dosage: 150 MG, UNK
     Route: 064
  6. HYDROCODONE W/ACETAMINOPHEN [Concomitant]
     Dosage: UNK, 5MG/500MG
     Route: 064
  7. HYDROCODONE/IBUPROFEN [Concomitant]
     Dosage: UNK, 7.5MG/200MG
     Route: 064
  8. ALPRAZOLAM [Concomitant]
     Dosage: UNK
     Route: 064
  9. PRENATAL VITAMINS [Concomitant]
     Dosage: UNK
     Route: 064

REACTIONS (7)
  - Maternal exposure during pregnancy [Unknown]
  - Ventricular septal defect [Unknown]
  - Double outlet right ventricle [Unknown]
  - Transposition of the great vessels [Unknown]
  - Atrial septal defect [Unknown]
  - Ventricular tachycardia [Unknown]
  - Atrioventricular block complete [Unknown]
